FAERS Safety Report 21449468 (Version 1)
Quarter: 2022Q4

REPORT INFORMATION
  Report Type: Spontaneous
  Country: FR (occurrence: FR)
  Receive Date: 20221013
  Receipt Date: 20221013
  Transmission Date: 20230113
  Serious: Yes (Other)
  Sender: FDA-Public Use
  Company Number: FR-AMGEN-FRASP2022166283

PATIENT
  Age: 26 Year
  Sex: Female

DRUGS (7)
  1. CARBOPLATIN [Suspect]
     Active Substance: CARBOPLATIN
     Indication: Non-small cell lung cancer metastatic
     Dosage: UNK
     Route: 065
     Dates: start: 202009
  2. PEMETREXED [Suspect]
     Active Substance: PEMETREXED
     Indication: Non-small cell lung cancer metastatic
     Dosage: UNK
     Route: 065
     Dates: start: 202009
  3. BEVACIZUMAB [Suspect]
     Active Substance: BEVACIZUMAB
     Indication: Non-small cell lung cancer metastatic
     Dosage: UNK
     Route: 065
     Dates: start: 202009
  4. GEMCITABINE [Concomitant]
     Active Substance: GEMCITABINE
     Indication: Non-small cell lung cancer metastatic
     Dosage: UNK
     Route: 065
  5. ATEZOLIZUMAB [Concomitant]
     Active Substance: ATEZOLIZUMAB
     Indication: Non-small cell lung cancer metastatic
     Dosage: UNK
     Route: 065
  6. NAVELBINE [Concomitant]
     Active Substance: VINORELBINE TARTRATE
     Indication: Non-small cell lung cancer metastatic
     Dosage: UNK, EVERY WEEK
     Route: 042
  7. NERATINIB [Concomitant]
     Active Substance: NERATINIB
     Indication: Non-small cell lung cancer metastatic
     Dosage: UNK
     Route: 065
     Dates: start: 20211006

REACTIONS (2)
  - Non-small cell lung cancer [Unknown]
  - Diarrhoea [Unknown]
